FAERS Safety Report 5624070-8 (Version None)
Quarter: 2008Q1

REPORT INFORMATION
  Report Type: 
  Country: None (occurrence: None)
  Receive Date: 20080213
  Receipt Date: 20070409
  Transmission Date: 20080703
  Serious: No
  Sender: FDA-Public Use
  Company Number: US-KINGPHARMUSA00001-K200700449

PATIENT

DRUGS (2)
  1. EPIPEN [Suspect]
     Dosage: UNK, SINGLE
     Dates: start: 20070407, end: 20070407
  2. LOTS OF MEDICATIONS-UNSPECIFIED [Concomitant]

REACTIONS (4)
  - ACCIDENTAL NEEDLE STICK [None]
  - EXPIRED DRUG ADMINISTERED [None]
  - INJECTION SITE HAEMORRHAGE [None]
  - INJECTION SITE PAIN [None]
